FAERS Safety Report 16464115 (Version 4)
Quarter: 2020Q2

REPORT INFORMATION
  Report Type: Spontaneous
  Country: US (occurrence: US)
  Receive Date: 20190621
  Receipt Date: 20200616
  Transmission Date: 20200713
  Serious: No
  Sender: FDA-Public Use
  Company Number: US-ASTELLAS-2018US047749

PATIENT
  Age: 61 Year
  Sex: Female

DRUGS (2)
  1. VESICARE [Suspect]
     Active Substance: SOLIFENACIN SUCCINATE
     Indication: BLADDER DISCOMFORT
     Route: 065
     Dates: start: 2012
  2. VESICARE [Suspect]
     Active Substance: SOLIFENACIN SUCCINATE
     Indication: BLADDER DISORDER
     Route: 065

REACTIONS (5)
  - Product dose omission [Unknown]
  - Wrong technique in product usage process [Unknown]
  - Dysuria [Recovered/Resolved]
  - Drug ineffective [Unknown]
  - Urinary retention [Unknown]

NARRATIVE: CASE EVENT DATE: 2015
